FAERS Safety Report 8801852 (Version 1)
Quarter: 2012Q4

REPORT INFORMATION
  Report Type: Report from Study
  Country: MX (occurrence: MX)
  Receive Date: 20120921
  Receipt Date: 20120921
  Transmission Date: 20130627
  Serious: Yes (Other)
  Sender: FDA-Public Use
  Company Number: MX-SANOFI-AVENTIS-2012SA067795

PATIENT

DRUGS (8)
  1. CLOPIDOGREL BISULFATE [Suspect]
     Indication: ACUTE CORONARY SYNDROME
     Route: 065
  2. CLOPIDOGREL BISULFATE [Suspect]
     Indication: PERCUTANEOUS CORONARY INTERVENTION
     Route: 065
  3. CLOPIDOGREL BISULFATE [Suspect]
     Indication: ACUTE CORONARY SYNDROME
     Route: 065
  4. CLOPIDOGREL BISULFATE [Suspect]
     Indication: PERCUTANEOUS CORONARY INTERVENTION
     Route: 065
  5. ACETYLSALICYLIC ACID [Suspect]
     Indication: ACUTE CORONARY SYNDROME
     Route: 065
  6. ACETYLSALICYLIC ACID [Suspect]
     Indication: PERCUTANEOUS CORONARY INTERVENTION
     Route: 065
  7. ACETYLSALICYLIC ACID [Suspect]
     Indication: ACUTE CORONARY SYNDROME
     Route: 065
  8. ACETYLSALICYLIC ACID [Suspect]
     Indication: PERCUTANEOUS CORONARY INTERVENTION
     Route: 065

REACTIONS (1)
  - Device occlusion [Unknown]
